FAERS Safety Report 5495938-0 (Version None)
Quarter: 2007Q4

REPORT INFORMATION
  Report Type: 
  Country: None (occurrence: None)
  Receive Date: 20071025
  Receipt Date: 20070205
  Transmission Date: 20080405
  Serious: Yes (Hospitalization, Other)
  Sender: FDA-Public Use
  Company Number: A0632849A

PATIENT
  Age: 36 Year
  Sex: Female

DRUGS (7)
  1. ADVAIR DISKUS 100/50 [Suspect]
     Indication: ASTHMA
     Dosage: 1PUFF TWICE PER DAY
     Route: 055
     Dates: start: 20010101
  2. PREDNISONE [Concomitant]
  3. TOPAMAX [Concomitant]
  4. ATACAND [Concomitant]
  5. EFFEXOR [Concomitant]
  6. TIMOLOL MALEATE [Concomitant]
  7. IMITREX [Concomitant]

REACTIONS (3)
  - BLOOD CORTISOL DECREASED [None]
  - HYPERSOMNIA [None]
  - WEIGHT INCREASED [None]
